FAERS Safety Report 17961495 (Version 1)
Quarter: 2020Q3

REPORT INFORMATION
  Report Type: Spontaneous
  Country: ES (occurrence: ES)
  Receive Date: 20200630
  Receipt Date: 20200630
  Transmission Date: 20201104
  Serious: Yes (Other)
  Sender: FDA-Public Use
  Company Number: ES-SA-2020SA121881

PATIENT

DRUGS (9)
  1. ETORICOXIB. [Suspect]
     Active Substance: ETORICOXIB
     Dosage: 90 MG, QD
  2. FOLIC ACID. [Suspect]
     Active Substance: FOLIC ACID
     Dosage: 5 MG, QW (THE DAY AFTER ADMINISTRATION OF MENTHOTREXATE)
  3. CALCIFEDIOL [Suspect]
     Active Substance: CALCIFEDIOL
     Dosage: 1 DF, QOW
  4. PREDNISONE. [Suspect]
     Active Substance: PREDNISONE
     Dosage: 5 UNK
  5. ACTONEL [Suspect]
     Active Substance: RISEDRONATE SODIUM
     Dosage: 35 MG, QW
  6. SARILUMAB [Suspect]
     Active Substance: SARILUMAB
     Dosage: 200 MG, QOW
     Route: 058
  7. METHOTREXATE. [Suspect]
     Active Substance: METHOTREXATE
     Dosage: 30 MG, QW
     Route: 058
  8. PREDNISONE. [Suspect]
     Active Substance: PREDNISONE
     Dosage: 10 MG, QD
  9. METHOTREXATE. [Suspect]
     Active Substance: METHOTREXATE
     Dosage: 25 MG,QW
     Route: 058

REACTIONS (4)
  - Leukopenia [Recovered/Resolved]
  - Therapeutic response unexpected [Unknown]
  - Arthralgia [Unknown]
  - Off label use [Unknown]
